FAERS Safety Report 8327468 (Version 2)
Quarter: 2012Q4

REPORT INFORMATION
  Report Type: 
  Country: FR (occurrence: FR)
  Receive Date: 20120109
  Receipt Date: 20120917
  Transmission Date: 20130627
  Serious: Yes (Hospitalization)
  Sender: FDA-Public Use
  Company Number: FR-BAYER-2012-001184

PATIENT
  Age: 34 Year
  Sex: Female

DRUGS (17)
  1. CIFLOX [Suspect]
     Indication: PNEUMONIA NECROTISING
     Dosage: 200 mg, BID
     Route: 042
     Dates: start: 20110203, end: 20110205
  2. CIFLOX [Suspect]
     Indication: PNEUMONIA NECROTISING
  3. ROCEPHINE [Suspect]
     Indication: PNEUMONIA NECROTISING
     Dosage: 2 g, QD
     Route: 042
     Dates: start: 20110201, end: 20110211
  4. ROCEPHINE [Suspect]
     Indication: LUNG DISORDER
  5. DALACINE [Suspect]
     Indication: PNEUMONIA NECROTISING
     Dosage: 1200 mg, BID
     Route: 042
     Dates: start: 20110205, end: 20110211
  6. DALACINE [Suspect]
     Indication: PNEUMONIA NECROTISING
  7. VANCOMYCIN [Suspect]
     Indication: PNEUMONIA NECROTISING
     Dosage: UNK
     Route: 042
     Dates: start: 20110205, end: 20110211
  8. VANCOMYCIN [Suspect]
     Indication: PNEUMONIA NECROTISING
  9. PRISTINAMYCIN [Suspect]
     Indication: PNEUMONIA NECROTISING
     Dosage: 1 g, TID
     Route: 042
     Dates: start: 20110203, end: 20110205
  10. PRISTINAMYCIN [Suspect]
     Indication: PNEUMONIA NECROTISING
  11. CLAFORAN [Suspect]
     Indication: PNEUMONIA NECROTISING
     Dosage: 1.5 g, QID
     Dates: start: 20110211
  12. CLAFORAN [Suspect]
     Indication: LUNG DISORDER
  13. ZYVOXID [Suspect]
     Indication: PNEUMONIA NECROTISING
     Dosage: 600 mg, BID
     Dates: start: 20110211
  14. ZYVOXID [Suspect]
     Indication: LUNG DISORDER
  15. FLAGYL [Suspect]
     Indication: PNEUMONIA NECROTISING
     Dosage: 500 mg, TID
     Dates: start: 20110211
  16. FLAGYL [Suspect]
     Indication: PNEUMONIA NECROTISING
  17. HYDROCORTISONE SODIUM SUCCINATE [Concomitant]
     Dosage: UNK
     Route: 042
     Dates: start: 20110203

REACTIONS (4)
  - Pancreatitis acute [Recovering/Resolving]
  - Drug reaction with eosinophilia and systemic symptoms [Recovered/Resolved]
  - Septic shock [Unknown]
  - Acute respiratory distress syndrome [Recovered/Resolved]
